FAERS Safety Report 8218732-6 (Version None)
Quarter: 2012Q1

REPORT INFORMATION
  Report Type: 
  Country: None (occurrence: None)
  Receive Date: 20120319
  Receipt Date: 20120312
  Transmission Date: 20120608
  Serious: Yes (Life-Threatening, Hospitalization, Other)
  Sender: FDA-Public Use
  Company Number: PHHY2012JP006652

PATIENT
  Sex: Female
  Weight: 67 kg

DRUGS (14)
  1. TRICHLORMETHIAZIDE [Suspect]
     Dosage: 2 MG, UNK
     Route: 048
     Dates: end: 20120120
  2. RASILEZ [Suspect]
     Indication: HYPERTENSION
     Dosage: 150 MG, DAILY
     Route: 048
     Dates: end: 20120220
  3. SITAGLIPTIN PHOSPHATE [Concomitant]
     Dosage: 50 MG, UNK
     Route: 048
     Dates: end: 20120120
  4. MONTELUKAST SODIUM [Concomitant]
     Dosage: 10 MG, UNK
     Route: 048
     Dates: end: 20120120
  5. P MAGEN [Concomitant]
     Route: 048
  6. SYAKUYAKUKANZOTO [Concomitant]
     Dosage: 60 MG, UNK
     Route: 048
  7. NIFEDIPINE [Concomitant]
     Dosage: 40 MG, UNK
     Route: 048
     Dates: end: 20120120
  8. SILECE [Concomitant]
     Dosage: 1 MG, UNK
     Route: 048
     Dates: end: 20120120
  9. MIGLITOL [Concomitant]
     Dosage: 150 MG, UNK
     Route: 048
     Dates: end: 20120120
  10. ZOLPIDEM [Concomitant]
     Route: 048
  11. LEVEMIR [Concomitant]
  12. HUMALOG [Concomitant]
  13. AVAPRO [Suspect]
     Dosage: 100 MG, UNK
     Route: 048
     Dates: end: 20120120
  14. METFORMIN HCL [Suspect]
     Dosage: 750 MG, UNK
     Route: 048
     Dates: end: 20120120

REACTIONS (6)
  - LONG QT SYNDROME [None]
  - LACTIC ACIDOSIS [None]
  - SINUS BRADYCARDIA [None]
  - HYPERKALAEMIA [None]
  - METABOLIC ACIDOSIS [None]
  - RENAL FUNCTION TEST ABNORMAL [None]
